FAERS Safety Report 19603016 (Version 1)
Quarter: 2021Q3

REPORT INFORMATION
  Report Type: Spontaneous
  Country: AU (occurrence: AU)
  Receive Date: 20210723
  Receipt Date: 20210723
  Transmission Date: 20211014
  Serious: Yes (Death, Hospitalization, Other)
  Sender: FDA-Public Use
  Company Number: AU-ENDO PHARMACEUTICALS INC-2021-010348

PATIENT
  Age: 68 Year
  Sex: Male

DRUGS (5)
  1. DILTIAZEM HYDROCHLORIDE. [Suspect]
     Active Substance: DILTIAZEM HYDROCHLORIDE
     Indication: HEART RATE INCREASED
     Dosage: UNK UNKNOWN, UNKNOWN
     Route: 048
  2. IBRUTINIB [Interacting]
     Active Substance: IBRUTINIB
     Indication: MANTLE CELL LYMPHOMA
     Dosage: UNK UNKNOWN, UNKNOWN
     Route: 065
  3. IBRUTINIB [Interacting]
     Active Substance: IBRUTINIB
     Dosage: 560 MG, DAILY
     Route: 065
  4. DIGOXIN. [Concomitant]
     Active Substance: DIGOXIN
     Indication: HEART RATE INCREASED
     Dosage: UNK UNKNOWN, UNKNOWN
     Route: 065
  5. METOPROLOL. [Concomitant]
     Active Substance: METOPROLOL
     Indication: HEART RATE INCREASED
     Dosage: UNK UNKNOWN, UNKNOWN
     Route: 065

REACTIONS (4)
  - Condition aggravated [Fatal]
  - Cardiac arrest [Fatal]
  - Drug interaction [Unknown]
  - Arrhythmia [Fatal]
